FAERS Safety Report 25283546 (Version 1)
Quarter: 2025Q2

REPORT INFORMATION
  Report Type: Spontaneous
  Country: US (occurrence: US)
  Receive Date: 20250508
  Receipt Date: 20250508
  Transmission Date: 20250717
  Serious: Yes (Other)
  Sender: PFIZER
  Company Number: US-PFIZER INC-202400253130

PATIENT
  Age: 76 Year
  Sex: Female
  Weight: 93.89 kg

DRUGS (2)
  1. IBRANCE [Suspect]
     Active Substance: PALBOCICLIB
     Indication: Breast cancer metastatic
     Route: 048
     Dates: start: 20240223
  2. LETROZOLE [Concomitant]
     Active Substance: LETROZOLE
     Indication: Breast cancer metastatic
     Dosage: 1 2.5MG TABLET DAILY, BY MOUTH
     Route: 048
     Dates: start: 202402

REACTIONS (3)
  - Pneumonia [Unknown]
  - Sinus disorder [Unknown]
  - Cough [Unknown]
